FAERS Safety Report 18277471 (Version 1)
Quarter: 2020Q3

REPORT INFORMATION
  Report Type: Spontaneous
  Country: PT (occurrence: PT)
  Receive Date: 20200917
  Receipt Date: 20200917
  Transmission Date: 20201103
  Serious: Yes (Hospitalization)
  Sender: FDA-Public Use
  Company Number: PT-SUN PHARMACEUTICAL INDUSTRIES LTD-2020RR-261212

PATIENT
  Age: 35 Year
  Sex: Female
  Weight: 50 kg

DRUGS (5)
  1. GONADOTROPIN?RELEASING HORMONE AGONIST [Suspect]
     Active Substance: GONADORELIN
     Indication: ASSISTED FERTILISATION
     Dosage: UNK
     Route: 065
  2. CETROTIDE [Suspect]
     Active Substance: CETRORELIX ACETATE
     Indication: INFERTILITY
     Dosage: UNK
     Route: 065
  3. GANIRELIX [Suspect]
     Active Substance: GANIRELIX
     Indication: INFERTILITY
     Dosage: UNK
     Route: 065
  4. FOLLITROPIN BETA [Suspect]
     Active Substance: FOLLITROPIN
     Indication: INFERTILITY
     Dosage: UNK
     Route: 065
  5. HUMAN MENOPAUSAL GONADOTROPHIN [Suspect]
     Active Substance: GONADOTROPHIN, CHORIONIC
     Indication: INFERTILITY
     Dosage: UNK
     Route: 065

REACTIONS (1)
  - Morphoea [Unknown]
